FAERS Safety Report 4351779-9 (Version None)
Quarter: 2004Q2

REPORT INFORMATION
  Report Type: 
  Country: None (occurrence: None)
  Receive Date: 20040503
  Receipt Date: 20040421
  Transmission Date: 20050107
  Serious: Yes (Hospitalization)
  Sender: FDA-Public Use
  Company Number: ES-GLAXOSMITHKLINE-B0331171A

PATIENT
  Age: 46 Year
  Sex: Female

DRUGS (2)
  1. AUGMENTIN [Suspect]
     Indication: URINARY TRACT INFECTION
     Dosage: 3TAB PER DAY
     Route: 048
     Dates: start: 20031122
  2. SULPIRIDE [Suspect]
     Route: 065

REACTIONS (7)
  - ALANINE AMINOTRANSFERASE INCREASED [None]
  - ASPARTATE AMINOTRANSFERASE INCREASED [None]
  - BLOOD ALKALINE PHOSPHATASE INCREASED [None]
  - BLOOD LACTATE DEHYDROGENASE INCREASED [None]
  - CHOLESTEROSIS [None]
  - HAEMANGIOMA OF LIVER [None]
  - HEPATITIS CHOLESTATIC [None]
